FAERS Safety Report 10208522 (Version 1)
Quarter: 2014Q2

REPORT INFORMATION
  Report Type: Spontaneous
  Country: MY (occurrence: MY)
  Receive Date: 20140530
  Receipt Date: 20140530
  Transmission Date: 20141212
  Serious: Yes (Other)
  Sender: FDA-Public Use
  Company Number: MY-GLAXOSMITHKLINE-B0998171A

PATIENT
  Age: 9 Month
  Sex: Male

DRUGS (2)
  1. VENTOLIN [Suspect]
     Indication: BRONCHIOLITIS
     Dosage: 1MG PER DAY
     Route: 055
  2. VENTOLIN [Suspect]
     Indication: BRONCHIOLITIS
     Route: 065

REACTIONS (2)
  - Orbital oedema [Recovered/Resolved]
  - Rash maculo-papular [Unknown]
